FAERS Safety Report 10563458 (Version 1)
Quarter: 2014Q4

REPORT INFORMATION
  Report Type: Spontaneous
  Country: GB (occurrence: GB)
  Receive Date: 20141104
  Receipt Date: 20141104
  Transmission Date: 20150529
  Serious: Yes (Other)
  Sender: FDA-Public Use
  Company Number: GB-PFIZER INC-2014299421

PATIENT
  Age: 45 Year
  Sex: Female

DRUGS (2)
  1. GOSERELIN [Suspect]
     Active Substance: GOSERELIN
     Dosage: UNK
  2. ESTROGENS CONJUGATED/MEDROXYPROGESTERONE ACETATE [Suspect]
     Active Substance: ESTROGENS, CONJUGATED\MEDROXYPROGESTERONE ACETATE
     Indication: HORMONE REPLACEMENT THERAPY
     Dosage: 625 MG OF CONJUGATED ESTROGEN AND 5 MG OF MEDROXYPROGESTERONE ACETATE

REACTIONS (3)
  - Pain [None]
  - Skin mass [None]
  - Endometriosis [Recovering/Resolving]
